FAERS Safety Report 14447338 (Version 1)
Quarter: 2018Q1

REPORT INFORMATION
  Report Type: Spontaneous
  Country: US (occurrence: US)
  Receive Date: 20180126
  Receipt Date: 20180126
  Transmission Date: 20180509
  Serious: Yes (Other)
  Sender: FDA-Public Use
  Company Number: US-EPIC PHARMA LLC-2018EPC00028

PATIENT
  Age: 35 Year
  Sex: Male
  Weight: 92 kg

DRUGS (2)
  1. OXYCODONE HYDROCHLORIDE. [Suspect]
     Active Substance: OXYCODONE HYDROCHLORIDE
     Indication: ABDOMINAL PAIN
     Dosage: 90-210 MG Q4H
     Route: 065
  2. OXYCODONE HYDROCHLORIDE. [Suspect]
     Active Substance: OXYCODONE HYDROCHLORIDE
     Indication: PROCTALGIA

REACTIONS (1)
  - Hyperaesthesia [Unknown]
